FAERS Safety Report 7328798-3 (Version None)
Quarter: 2011Q1

REPORT INFORMATION
  Report Type: 
  Country: None (occurrence: None)
  Receive Date: 20110303
  Receipt Date: 20110303
  Transmission Date: 20110831
  Serious: Yes (Death, Hospitalization, Disabling, Other)
  Sender: FDA-Public Use
  Company Number: PHHO2009CZ15781

PATIENT
  Sex: Male
  Weight: 70 kg

DRUGS (4)
  1. SANDOSTATIN [Suspect]
     Indication: CARCINOID TUMOUR
     Dosage: UNK
     Route: 058
     Dates: start: 20080430
  2. PLACEBO [Suspect]
     Indication: CARCINOID TUMOUR
     Dosage: PLACEBO
     Route: 048
     Dates: start: 20080430
  3. TULIP [Concomitant]
     Indication: HYPERCHOLESTEROLAEMIA
  4. AGEN [Concomitant]
     Indication: HYPERTENSION

REACTIONS (10)
  - METASTASES TO PERITONEUM [None]
  - ABDOMINAL CAVITY DRAINAGE [None]
  - GENERAL PHYSICAL HEALTH DETERIORATION [None]
  - DRUG INEFFECTIVE [None]
  - DECREASED APPETITE [None]
  - WEIGHT DECREASED [None]
  - METASTASES TO LIVER [None]
  - NEOPLASM MALIGNANT [None]
  - ASCITES [None]
  - ABDOMINAL PAIN [None]
